FAERS Safety Report 24057538 (Version 1)
Quarter: 2024Q3

REPORT INFORMATION
  Report Type: Spontaneous
  Country: CN (occurrence: CN)
  Receive Date: 20240706
  Receipt Date: 20240706
  Transmission Date: 20241016
  Serious: Yes (Hospitalization, Other)
  Sender: MERCK
  Company Number: CN-009507513-2407CHN001835

PATIENT
  Age: 61 Year
  Sex: Male
  Weight: 74 kg

DRUGS (8)
  1. KEYTRUDA [Suspect]
     Active Substance: PEMBROLIZUMAB
     Indication: Neoplasm
     Dosage: 200 MG, Q3W (EVERY 21 DAYS)
     Route: 041
     Dates: start: 20230424, end: 20230424
  2. KEYTRUDA [Suspect]
     Active Substance: PEMBROLIZUMAB
     Indication: Hypopharyngeal cancer
     Dosage: 200 MG, Q3W (EVERY 21 DAYS)
     Route: 041
     Dates: start: 20230523, end: 20230523
  3. KEYTRUDA [Suspect]
     Active Substance: PEMBROLIZUMAB
     Dosage: 200 MG, Q3W (EVERY 21 DAYS)
     Route: 041
     Dates: start: 20230614, end: 20230614
  4. KEYTRUDA [Suspect]
     Active Substance: PEMBROLIZUMAB
     Dosage: 200 MG, Q3W (EVERY 21 DAYS)
     Route: 041
     Dates: start: 20230706, end: 20230706
  5. KEYTRUDA [Suspect]
     Active Substance: PEMBROLIZUMAB
     Dosage: 200 MG, Q3W (EVERY 21 DAYS)
     Route: 041
     Dates: start: 20230721, end: 20230721
  6. KEYTRUDA [Suspect]
     Active Substance: PEMBROLIZUMAB
     Dosage: 200 MG, Q3W (EVERY 21 DAYS)
     Route: 041
     Dates: start: 20230817, end: 20230817
  7. KEYTRUDA [Suspect]
     Active Substance: PEMBROLIZUMAB
     Dosage: 200 MG, Q3W (EVERY 21 DAYS)
     Route: 041
     Dates: start: 20240117, end: 20240117
  8. SODIUM CHLORIDE [Concomitant]
     Active Substance: SODIUM CHLORIDE
     Dosage: 100 MILLILITER, UNKNOWN
     Route: 041
     Dates: start: 20240117

REACTIONS (9)
  - Hospitalisation [Unknown]
  - Radiotherapy [Unknown]
  - Cortisol decreased [Recovering/Resolving]
  - Surgery [Unknown]
  - Inappropriate schedule of product administration [Unknown]
  - Inappropriate schedule of product administration [Unknown]
  - Inappropriate schedule of product administration [Unknown]
  - Inappropriate schedule of product administration [Unknown]
  - Inappropriate schedule of product administration [Unknown]

NARRATIVE: CASE EVENT DATE: 20230523
